FAERS Safety Report 14612607 (Version 1)
Quarter: 2018Q1

REPORT INFORMATION
  Report Type: Spontaneous
  Country: US (occurrence: US)
  Receive Date: 20180308
  Receipt Date: 20180308
  Transmission Date: 20180509
  Serious: Yes (Other)
  Sender: FDA-Public Use
  Company Number: US-TEVA-2018-US-865652

PATIENT
  Age: 39 Year
  Sex: Male
  Weight: 104 kg

DRUGS (3)
  1. FLONASE [Concomitant]
     Active Substance: FLUTICASONE PROPIONATE
     Indication: UPPER-AIRWAY COUGH SYNDROME
     Route: 065
  2. FLONASE [Concomitant]
     Active Substance: FLUTICASONE PROPIONATE
     Indication: HYPERSENSITIVITY
  3. COPAXONE [Suspect]
     Active Substance: GLATIRAMER ACETATE
     Indication: MULTIPLE SCLEROSIS
     Route: 058
     Dates: start: 200809

REACTIONS (5)
  - Necrosis [Unknown]
  - Injection site pain [Unknown]
  - Infusion site erythema [Unknown]
  - Injection site urticaria [Unknown]
  - Infection [Unknown]

NARRATIVE: CASE EVENT DATE: 20180129
